FAERS Safety Report 19893762 (Version 1)
Quarter: 2021Q3

REPORT INFORMATION
  Report Type: Spontaneous
  Country: US (occurrence: US)
  Receive Date: 20210929
  Receipt Date: 20210929
  Transmission Date: 20211014
  Serious: No
  Sender: FDA-Public Use
  Company Number: US-UNITED THERAPEUTICS-UNT-2021-018730

PATIENT
  Sex: Male

DRUGS (1)
  1. TYVASO [Suspect]
     Active Substance: TREPROSTINIL
     Indication: PRODUCT USED FOR UNKNOWN INDICATION
     Dosage: UNK
     Route: 048
     Dates: start: 20210919

REACTIONS (5)
  - Accidental exposure to product [Unknown]
  - Skin warm [Unknown]
  - Dizziness [Unknown]
  - Hyperhidrosis [Unknown]
  - Product storage error [Unknown]

NARRATIVE: CASE EVENT DATE: 20210919
